FAERS Safety Report 9270875 (Version 1)
Quarter: 2013Q2

REPORT INFORMATION
  Report Type: Spontaneous
  Country: FR (occurrence: FR)
  Receive Date: 20130503
  Receipt Date: 20130503
  Transmission Date: 20140414
  Serious: Yes (Hospitalization, Other)
  Sender: FDA-Public Use
  Company Number: FR-ASTRAZENECA-2013SE29607

PATIENT
  Age: 42 Year
  Sex: Female

DRUGS (1)
  1. HYTACAND [Suspect]
     Indication: HYPERTENSION
     Dosage: 8/12.5 MG, 1 DF, EVERY DAY
     Route: 048
     Dates: end: 20130319

REACTIONS (2)
  - Exposure during pregnancy [Recovered/Resolved]
  - Amniotic fluid volume decreased [Unknown]
